FAERS Safety Report 8283143-4 (Version None)
Quarter: 2012Q1

REPORT INFORMATION
  Report Type: 
  Country: None (occurrence: None)
  Receive Date: 20120326
  Receipt Date: 20120313
  Transmission Date: 20120608
  Serious: Yes (Other)
  Sender: FDA-Public Use
  Company Number: 2012031620

PATIENT
  Age: 60 Year
  Sex: Female
  Weight: 40.8237 kg

DRUGS (19)
  1. PROMETHAZINE [Concomitant]
  2. HIZENTRA [Suspect]
     Indication: IMMUNODEFICIENCY COMMON VARIABLE
     Dosage: 10 G 1X/WEEK. 10 G (50 ML) WEEKLY VIA FOUR SITES OVER 1-2 HOURS SUBCUTANEOUS)
     Route: 058
     Dates: start: 20120312
  3. HIZENTRA [Suspect]
     Indication: IMMUNODEFICIENCY COMMON VARIABLE
     Dosage: 10 G 1X/WEEK. 10 G (50 ML) WEEKLY VIA FOUR SITES OVER 1-2 HOURS SUBCUTANEOUS)
     Route: 058
     Dates: start: 20120312
  4. HIZENTRA [Suspect]
     Indication: IMMUNODEFICIENCY COMMON VARIABLE
     Dosage: 10 G 1X/WEEK. 10 G (50 ML) WEEKLY VIA FOUR SITES OVER 1-2 HOURS SUBCUTANEOUS)
     Route: 058
     Dates: start: 20110225
  5. HIZENTRA [Suspect]
  6. PROCHLORPERAZINE MALEATE [Concomitant]
  7. DILTIAZEM [Concomitant]
  8. DIAZEPAM [Concomitant]
  9. CYCLOBENZAPRINE [Concomitant]
  10. LORATADINE [Concomitant]
  11. ATENOLOL [Concomitant]
  12. AMITRIPTYLINE HCL [Concomitant]
  13. HYDROCHLOROTHIAZIDE [Concomitant]
  14. MECLIZINE [Concomitant]
  15. OMEPRAZOLE [Concomitant]
  16. TOPAMAX [Concomitant]
  17. FUROSEMIDE (FUROSEMIDE) [Concomitant]
  18. PREDNISONE TAB [Concomitant]
  19. KLOR-CON [Concomitant]

REACTIONS (3)
  - INFUSION SITE PAIN [None]
  - PNEUMONIA PRIMARY ATYPICAL [None]
  - INFUSION SITE REACTION [None]
